FAERS Safety Report 7879962-6 (Version None)
Quarter: 2011Q4

REPORT INFORMATION
  Report Type: 
  Country: None (occurrence: None)
  Receive Date: 20111101
  Receipt Date: 20111026
  Transmission Date: 20120403
  Serious: Yes (Hospitalization)
  Sender: FDA-Public Use
  Company Number: FR-PURDUE-GBR-2011-0008987

PATIENT
  Sex: Female

DRUGS (11)
  1. TRANSIPEG                          /00754501/ [Concomitant]
  2. AMLODIPINE BESYLATE [Concomitant]
     Dosage: 5 MG, UNK
  3. FUROSEMIDE [Concomitant]
     Dosage: 40 MG, UNK
  4. MIANSERINE BIOGARAN [Concomitant]
     Dosage: 10 MG, UNK
  5. SYMBICORT [Concomitant]
  6. INSULIN NPH                        /01223208/ [Concomitant]
  7. OXYCODONE HCL [Suspect]
     Indication: SCIATICA
     Dosage: 1 DF, DAILY
     Route: 048
     Dates: start: 20091217, end: 20091219
  8. COZAAR [Concomitant]
     Dosage: 100 MG, UNK
  9. LYRICA [Concomitant]
     Dosage: UNK
  10. POTASSIUM CHLORIDE [Concomitant]
  11. LANSOPRAZOLE [Concomitant]
     Dosage: 15 MG, UNK

REACTIONS (5)
  - DYSPNOEA [None]
  - WHEEZING [None]
  - DISORIENTATION [None]
  - ALTERED STATE OF CONSCIOUSNESS [None]
  - OEDEMA PERIPHERAL [None]
